FAERS Safety Report 7597218-6 (Version None)
Quarter: 2011Q3

REPORT INFORMATION
  Report Type: 
  Country: None (occurrence: None)
  Receive Date: 20110708
  Receipt Date: 20101004
  Transmission Date: 20111222
  Serious: No
  Sender: FDA-Public Use
  Company Number: US-GLAXOSMITHKLINE-A0884788A

PATIENT
  Age: 49 Year
  Sex: Female

DRUGS (3)
  1. ZYRTEC [Concomitant]
  2. ALBUTEROL SULFATE AUTOHALER [Concomitant]
  3. FLOVENT [Suspect]
     Indication: ASTHMA
     Route: 055
     Dates: start: 20100501

REACTIONS (4)
  - GINGIVAL PAIN [None]
  - BLISTER [None]
  - STOMATITIS [None]
  - ORAL MUCOSAL EXFOLIATION [None]
